FAERS Safety Report 5309753-1 (Version None)
Quarter: 2007Q2

REPORT INFORMATION
  Report Type: 
  Country: None (occurrence: None)
  Receive Date: 20070427
  Receipt Date: 20060912
  Transmission Date: 20071010
  Serious: No
  Sender: FDA-Public Use
  Company Number: US-GLAXOSMITHKLINE-A0619920A

PATIENT
  Sex: Female

DRUGS (6)
  1. ZOFRAN [Suspect]
     Indication: PARKINSONISM
     Route: 065
     Dates: start: 20060801
  2. XANAX [Concomitant]
  3. VITAMINS [Concomitant]
  4. MAGNESIUM SULFATE [Concomitant]
  5. BACTRIM [Concomitant]
  6. SINEMET [Concomitant]

REACTIONS (2)
  - DRUG ADMINISTRATION ERROR [None]
  - THERAPEUTIC RESPONSE UNEXPECTED [None]
